FAERS Safety Report 22233815 (Version 1)
Quarter: 2023Q2

REPORT INFORMATION
  Report Type: Spontaneous
  Country: US (occurrence: None)
  Receive Date: 20230420
  Receipt Date: 20230420
  Transmission Date: 20230721
  Serious: No
  Sender: FDA-Public Use
  Company Number: US-ROCHE-3120310

PATIENT
  Sex: Male
  Weight: 113.50 kg

DRUGS (2)
  1. ESBRIET [Suspect]
     Active Substance: PIRFENIDONE
     Indication: Idiopathic pulmonary fibrosis
     Dosage: 3 PILLS A DAY
     Route: 048
  2. ESBRIET [Suspect]
     Active Substance: PIRFENIDONE
     Dosage: 9 PILLS A DAY; ONGOING: NO
     Route: 048

REACTIONS (3)
  - Nausea [Recovering/Resolving]
  - Fatigue [Not Recovered/Not Resolved]
  - Headache [Not Recovered/Not Resolved]
